FAERS Safety Report 4700761-8 (Version None)
Quarter: 2005Q2

REPORT INFORMATION
  Report Type: 
  Country: None (occurrence: None)
  Receive Date: 20050624
  Receipt Date: 20040528
  Transmission Date: 20051028
  Serious: Yes (Death)
  Sender: FDA-Public Use
  Company Number: 369664

PATIENT
  Age: 68 Year
  Sex: Male

DRUGS (1)
  1. XELODA [Suspect]
     Indication: COLORECTAL CANCER METASTATIC

REACTIONS (5)
  - CARCINOEMBRYONIC ANTIGEN INCREASED [None]
  - COLORECTAL CANCER METASTATIC [None]
  - DEATH [None]
  - DISEASE PROGRESSION [None]
  - VOMITING [None]
